FAERS Safety Report 24977810 (Version 2)
Quarter: 2025Q1

REPORT INFORMATION
  Report Type: Other
  Country: CN (occurrence: CN)
  Receive Date: 20250217
  Receipt Date: 20250221
  Transmission Date: 20250409
  Serious: Yes (Other)
  Sender: NOVARTIS
  Company Number: CN-002147023-NVSC2025CN025359

PATIENT
  Sex: Female

DRUGS (3)
  1. VALSARTAN [Suspect]
     Active Substance: VALSARTAN
     Indication: Hypertension
     Route: 048
  2. NIFEDIPINE [Concomitant]
     Active Substance: NIFEDIPINE
     Indication: Hypertension
     Route: 048
  3. TARTARIC ACID [Concomitant]
     Active Substance: TARTARIC ACID
     Indication: Hypertension
     Route: 048

REACTIONS (4)
  - Hypertension [Recovering/Resolving]
  - Pallor [Unknown]
  - Menstrual disorder [Unknown]
  - Menstrual clots [Unknown]
